FAERS Safety Report 16110325 (Version 1)
Quarter: 2019Q1

REPORT INFORMATION
  Report Type: Spontaneous
  Country: FR (occurrence: FR)
  Receive Date: 20190325
  Receipt Date: 20190325
  Transmission Date: 20190418
  Serious: Yes (Death)
  Sender: FDA-Public Use
  Company Number: FR-ORPHAN EUROPE-2064478

PATIENT
  Age: 6 Year
  Sex: Female

DRUGS (2)
  1. UCEDANE [Concomitant]
     Dates: start: 20190108, end: 201901
  2. CARBAGLU [Suspect]
     Active Substance: CARGLUMIC ACID
     Indication: HYPERGLYCINAEMIA
     Dates: start: 201607, end: 20190107

REACTIONS (3)
  - Infection [Fatal]
  - General physical health deterioration [Recovered/Resolved]
  - Hyperammonaemia [Recovered/Resolved]

NARRATIVE: CASE EVENT DATE: 201901
